FAERS Safety Report 9385073 (Version 2)
Quarter: 2013Q3

REPORT INFORMATION
  Report Type: Spontaneous
  Country: ZA (occurrence: ZA)
  Receive Date: 20130705
  Receipt Date: 20130729
  Transmission Date: 20140515
  Serious: Yes (Hospitalization)
  Sender: FDA-Public Use
  Company Number: ZA-NOVOPROD-380326

PATIENT
  Age: 37 Year
  Sex: Male
  Weight: 115 kg

DRUGS (5)
  1. VICTOZA [Suspect]
     Indication: TYPE 2 DIABETES MELLITUS
     Dosage: 1.2 MG, SINGLE
     Route: 058
     Dates: start: 201304
  2. VICTOZA [Suspect]
     Indication: WEIGHT CONTROL
  3. NUZAK [Concomitant]
     Indication: DEPRESSION
     Dosage: UNKNOWN
     Route: 065
  4. GLUCOPHAGE [Concomitant]
     Indication: TYPE 2 DIABETES MELLITUS
     Dosage: UNKNOWN
     Route: 065
  5. ACETYLSALICYLIC ACID [Concomitant]
     Indication: CARDIOVASCULAR EVENT PROPHYLAXIS
     Dosage: UNK

REACTIONS (1)
  - Peptic ulcer [Recovered/Resolved]
